FAERS Safety Report 14002191 (Version 1)
Quarter: 2017Q3

REPORT INFORMATION
  Report Type: Spontaneous
  Country: US (occurrence: US)
  Receive Date: 20170922
  Receipt Date: 20170922
  Transmission Date: 20171128
  Serious: No
  Sender: FDA-Public Use
  Company Number: US-JNJFOC-20170915647

PATIENT
  Age: 70 Year
  Sex: Male
  Weight: 90.27 kg

DRUGS (7)
  1. CELEBREX [Concomitant]
     Active Substance: CELECOXIB
     Route: 065
  2. CIALIS [Concomitant]
     Active Substance: TADALAFIL
     Route: 065
  3. METOPROLOL. [Concomitant]
     Active Substance: METOPROLOL
     Route: 065
  4. LIPITOR [Concomitant]
     Active Substance: ATORVASTATIN CALCIUM
     Route: 065
  5. XARELTO [Suspect]
     Active Substance: RIVAROXABAN
     Indication: ATRIAL FIBRILLATION
     Route: 048
     Dates: start: 201704
  6. VALSARTAN. [Concomitant]
     Active Substance: VALSARTAN
     Route: 065
  7. XARELTO [Suspect]
     Active Substance: RIVAROXABAN
     Indication: CEREBROVASCULAR ACCIDENT PROPHYLAXIS
     Route: 048
     Dates: start: 201704

REACTIONS (5)
  - Off label use [Unknown]
  - Inappropriate schedule of drug administration [Unknown]
  - Activated partial thromboplastin time prolonged [Unknown]
  - Prothrombin level increased [Unknown]
  - International normalised ratio increased [Unknown]

NARRATIVE: CASE EVENT DATE: 201704
